FAERS Safety Report 7249531-X (Version None)
Quarter: 2011Q1

REPORT INFORMATION
  Report Type: 
  Country: None (occurrence: None)
  Receive Date: 20110128
  Receipt Date: 20101123
  Transmission Date: 20110831
  Serious: Yes (Hospitalization, Other)
  Sender: FDA-Public Use
  Company Number: US-BAYER-201037933NA

PATIENT
  Sex: Female
  Weight: 90.703 kg

DRUGS (5)
  1. ABILIFY [Concomitant]
     Indication: DEPRESSION
  2. YAZ [Suspect]
     Indication: ACNE
  3. YASMIN [Suspect]
     Indication: CONTRACEPTION
     Dosage: UNK
     Dates: start: 20040101, end: 20080101
  4. LEXAPRO [Concomitant]
     Indication: DEPRESSION
  5. OCELLA [Suspect]
     Indication: ACNE

REACTIONS (5)
  - BILIARY COLIC [None]
  - CHOLELITHIASIS [None]
  - CHOLECYSTITIS ACUTE [None]
  - PANCREATITIS [None]
  - ABDOMINAL PAIN [None]
